FAERS Safety Report 4842679-6 (Version None)
Quarter: 2005Q4

REPORT INFORMATION
  Report Type: 
  Country: None (occurrence: None)
  Receive Date: 20051129
  Receipt Date: 20051111
  Transmission Date: 20060501
  Serious: Yes (Other)
  Sender: FDA-Public Use
  Company Number: USA0510109872

PATIENT
  Age: 88 Year
  Sex: Female

DRUGS (2)
  1. FORTEO [Suspect]
     Indication: OSTEOPOROSIS
     Dosage: 20 UG, DAILY (1/D), UNK
     Route: 065
     Dates: end: 20050930
  2. FORTEO PEN, 250MCG/ML (3ML) (FORTEO PEN, 250MCG/ML (3ML) ) [Concomitant]

REACTIONS (8)
  - BACK PAIN [None]
  - GASTROENTERITIS [None]
  - IMPAIRED SELF-CARE [None]
  - MALABSORPTION [None]
  - MOBILITY DECREASED [None]
  - PAIN [None]
  - PHARMACEUTICAL PRODUCT COMPLAINT [None]
  - WEIGHT DECREASED [None]
